FAERS Safety Report 17647404 (Version 1)
Quarter: 2020Q2

REPORT INFORMATION
  Report Type: Spontaneous
  Country: JP (occurrence: JP)
  Receive Date: 20200408
  Receipt Date: 20200408
  Transmission Date: 20200713
  Serious: Yes (Death, Other)
  Sender: FDA-Public Use
  Company Number: JP-JNJFOC-20191004194

PATIENT
  Age: 77 Year
  Sex: Male
  Weight: 65.9 kg

DRUGS (10)
  1. PREDNISOLONE. [Concomitant]
     Active Substance: PREDNISOLONE
     Indication: INTERSTITIAL LUNG DISEASE
     Dosage: DAILY DOSE 1 DF
     Route: 048
     Dates: start: 20090706
  2. LUPRAC [Concomitant]
     Active Substance: TORSEMIDE
     Indication: CARDIAC FAILURE
     Dosage: DAILY DOSE 1 DF
     Route: 048
     Dates: start: 20150724
  3. ARTIST [Concomitant]
     Active Substance: CARVEDILOL
     Indication: HYPERTENSION
     Dosage: DAILY DOSE 2 DF
     Route: 048
     Dates: start: 20101203
  4. EPLERENONE. [Concomitant]
     Active Substance: EPLERENONE
     Indication: HYPERTENSION
     Dosage: DAILY DOSE 1 DF
     Route: 048
     Dates: start: 20090709
  5. MAINTATE [Concomitant]
     Active Substance: BISOPROLOL FUMARATE
     Indication: HYPERTENSION
     Dosage: DAILY DOSE 2 DF
     Dates: start: 20140801
  6. ADALAT CC [Concomitant]
     Active Substance: NIFEDIPINE
     Indication: HYPERTENSION
     Dosage: DAILY DOSE 2 DF
     Dates: start: 20090918
  7. LIPITOR [Concomitant]
     Active Substance: ATORVASTATIN CALCIUM
     Indication: HYPERLIPIDAEMIA
     Dosage: DAILY DOSE 1 DF
     Route: 048
     Dates: start: 20070820
  8. RIVAROXABAN [Suspect]
     Active Substance: RIVAROXABAN
     Indication: ATRIAL FIBRILLATION
     Dosage: DAILY DOSE 15 MG
     Route: 048
     Dates: start: 20140801
  9. ANPLAG [SARPOGRELATE HYDROCHLORIDE] [Suspect]
     Active Substance: SARPOGRELATE HYDROCHLORIDE
     Indication: PRODUCT USED FOR UNKNOWN INDICATION
     Dosage: 100 MG, TID
     Route: 048
     Dates: start: 20091216
  10. FEBURIC [Concomitant]
     Active Substance: FEBUXOSTAT
     Indication: HYPERURICAEMIA
     Dosage: DAILY DOSE 1 DF
     Route: 048
     Dates: start: 20150313

REACTIONS (3)
  - Interstitial lung disease [Fatal]
  - Overdose [Unknown]
  - Haemorrhage subcutaneous [Recovered/Resolved]

NARRATIVE: CASE EVENT DATE: 20180629
